FAERS Safety Report 5385913-9 (Version None)
Quarter: 2007Q3

REPORT INFORMATION
  Report Type: 
  Country: None (occurrence: None)
  Receive Date: 20070712
  Receipt Date: 20070703
  Transmission Date: 20080115
  Serious: Yes (Hospitalization, Other)
  Sender: FDA-Public Use
  Company Number: FR-AMGEN-US233080

PATIENT
  Age: 76 Year
  Sex: Male

DRUGS (7)
  1. ENBREL [Suspect]
     Indication: RHEUMATOID ARTHRITIS
     Dosage: 50 MG TOTAL WEEKLY
     Route: 058
     Dates: start: 20070312, end: 20070404
  2. ARAVA [Suspect]
     Indication: RHEUMATOID ARTHRITIS
     Route: 048
     Dates: start: 20060710, end: 20070404
  3. TRAMADOL HCL [Concomitant]
     Dosage: UNKNOWN; ON REQUEST
     Route: 065
  4. OMIX [Concomitant]
     Dosage: 0.4 MG; FREQUENCY UNSPEC.
     Route: 048
  5. ACETAMINOPHEN AND TRAMADOL HCL [Concomitant]
     Dosage: UNKNOWN; ON REQUEST
     Route: 048
  6. MEDROL [Concomitant]
     Dosage: 16 TO 32 MG TOTAL DAILY
     Route: 048
  7. MEDROL [Concomitant]
     Route: 048
     Dates: start: 20070301

REACTIONS (4)
  - ATRIAL FIBRILLATION [None]
  - FALL [None]
  - PNEUMOCYSTIS JIROVECI PNEUMONIA [None]
  - PRODUCTIVE COUGH [None]
